FAERS Safety Report 9866979 (Version 2)
Quarter: 2014Q1

REPORT INFORMATION
  Report Type: Report from Study
  Country: NO (occurrence: NO)
  Receive Date: 20140204
  Receipt Date: 20140224
  Transmission Date: 20141002
  Serious: Yes (Hospitalization)
  Sender: FDA-Public Use
  Company Number: NO-ROCHE-1342043

PATIENT
  Age: 58 Year
  Sex: Female
  Weight: 80 kg

DRUGS (4)
  1. TOCILIZUMAB [Suspect]
     Indication: RHEUMATOID ARTHRITIS
     Route: 065
     Dates: start: 20130516
  2. TOCILIZUMAB [Suspect]
     Route: 065
     Dates: start: 20130626
  3. PREDNISOLONE [Concomitant]
     Indication: RHEUMATOID ARTHRITIS
     Route: 065
     Dates: start: 20010101
  4. MEDROL [Concomitant]
     Indication: RHEUMATOID ARTHRITIS
     Route: 065

REACTIONS (2)
  - Gastric haemorrhage [Recovered/Resolved]
  - Chest pain [Recovered/Resolved]
